FAERS Safety Report 16797694 (Version 1)
Quarter: 2019Q3

REPORT INFORMATION
  Report Type: Spontaneous
  Country: GB (occurrence: GB)
  Receive Date: 20190912
  Receipt Date: 20190912
  Transmission Date: 20191005
  Serious: Yes (Other)
  Sender: FDA-Public Use
  Company Number: GB-TEVA-2019-GB-1105799

PATIENT
  Age: 79 Year
  Weight: 149 kg

DRUGS (8)
  1. TEVA UK OMEPRAZOLE [Suspect]
     Active Substance: OMEPRAZOLE
     Dosage: 1 DOSAGE FORMS DAILY;
     Route: 048
     Dates: start: 20190719, end: 20190810
  2. MOMETASONE [Concomitant]
     Active Substance: MOMETASONE
  3. SALBUTAMOL [Concomitant]
     Active Substance: ALBUTEROL
  4. LUTEIN [Concomitant]
     Active Substance: LUTEIN
  5. ZEAXANTHIN [Concomitant]
     Active Substance: ZEAXANTHIN
  6. TAMSULOSIN [Concomitant]
     Active Substance: TAMSULOSIN
  7. ATORVASTATIN [Concomitant]
     Active Substance: ATORVASTATIN
  8. FINASTERIDE. [Concomitant]
     Active Substance: FINASTERIDE

REACTIONS (3)
  - Flatulence [Recovered/Resolved]
  - Fatigue [Recovered/Resolved]
  - Balance disorder [Recovered/Resolved]

NARRATIVE: CASE EVENT DATE: 20190719
